FAERS Safety Report 12470916 (Version 1)
Quarter: 2016Q2

REPORT INFORMATION
  Report Type: Spontaneous
  Country: LT (occurrence: LT)
  Receive Date: 20160616
  Receipt Date: 20160616
  Transmission Date: 20160815
  Serious: Yes (Hospitalization, Other)
  Sender: FDA-Public Use
  Company Number: LT-SUN PHARMACEUTICAL INDUSTRIES LTD-2016RR-118564

PATIENT
  Age: 74 Year
  Sex: Female

DRUGS (4)
  1. PREGABALIN. [Suspect]
     Active Substance: PREGABALIN
     Indication: NEURALGIA
     Dosage: 75 MG, TID
     Route: 065
  2. KETANOV [Suspect]
     Active Substance: KETOROLAC\KETOROLAC TROMETHAMINE
     Indication: NEURALGIA
     Dosage: 10 MG, TID
     Route: 065
  3. LORNOXICAM [Suspect]
     Active Substance: LORNOXICAM
     Indication: NEURALGIA
     Dosage: 8 MG, 2-3 TIMES PER DAY
     Route: 065
  4. GABAPENTIN. [Suspect]
     Active Substance: GABAPENTIN
     Indication: NEURALGIA
     Dosage: 600 MG, TID
     Route: 065

REACTIONS (2)
  - Rash papular [Recovering/Resolving]
  - Drug ineffective [Unknown]
